FAERS Safety Report 22598151 (Version 1)
Quarter: 2023Q2

REPORT INFORMATION
  Report Type: Spontaneous
  Country: US (occurrence: None)
  Receive Date: 20230614
  Receipt Date: 20230614
  Transmission Date: 20230722
  Serious: No
  Sender: FDA-Public Use
  Company Number: US-MDD US Operations-MDD202303-000971

PATIENT
  Age: 76 Year
  Sex: Male
  Weight: 61.235 kg

DRUGS (6)
  1. APOKYN [Suspect]
     Active Substance: APOMORPHINE HYDROCHLORIDE
     Indication: Parkinson^s disease
     Route: 058
  2. CARBIDOPA\LEVODOPA [Concomitant]
     Active Substance: CARBIDOPA\LEVODOPA
     Dosage: NOT PROVIDED
  3. ROPINIROLE [Concomitant]
     Active Substance: ROPINIROLE
     Dosage: NOT PROVIDED
  4. SELEGILINE [Concomitant]
     Active Substance: SELEGILINE
     Dosage: NOT PROVIDED
  5. LINZESS [Concomitant]
     Active Substance: LINACLOTIDE
     Dosage: NOT PROVIDED
  6. INBRIJA [Concomitant]
     Active Substance: LEVODOPA
     Dosage: NOT PROVIDED

REACTIONS (2)
  - Malaise [Recovered/Resolved]
  - Weight decreased [Unknown]
